FAERS Safety Report 5104571-1 (Version None)
Quarter: 2006Q3

REPORT INFORMATION
  Report Type: 
  Country: None (occurrence: None)
  Receive Date: 20060911
  Receipt Date: 20060830
  Transmission Date: 20061208
  Serious: Yes (Death, Life-Threatening, Other)
  Sender: FDA-Public Use
  Company Number: FR200608006477

PATIENT
  Age: 71 Year
  Sex: Male
  Weight: 78 kg

DRUGS (6)
  1. ZYPREXA [Suspect]
     Indication: DELUSIONAL DISORDER, PERSECUTORY TYPE
     Dosage: ORAL
     Route: 048
     Dates: start: 20050310
  2. INSULATARD HM        (INSULIN HUMAN INJECTION, ISOPHANE) [Concomitant]
  3. PRAVASTATIN [Concomitant]
  4. ZESTRIL [Concomitant]
  5. AMLODIPINE BESYLATE [Concomitant]
  6. NITRIDERM TTS         (GLYCERYL TRINITRATE) [Concomitant]

REACTIONS (9)
  - ANAEMIA [None]
  - BLOOD CREATINE PHOSPHOKINASE INCREASED [None]
  - C-REACTIVE PROTEIN INCREASED [None]
  - FLATULENCE [None]
  - HAEMOGLOBIN DECREASED [None]
  - LEUKOCYTOSIS [None]
  - PYREXIA [None]
  - RENAL FAILURE ACUTE [None]
  - TROPONIN INCREASED [None]
